FAERS Safety Report 11866415 (Version 1)
Quarter: 2015Q4

REPORT INFORMATION
  Report Type: Spontaneous
  Country: US (occurrence: US)
  Receive Date: 20151224
  Receipt Date: 20151224
  Transmission Date: 20160305
  Serious: Yes (Death)
  Sender: FDA-Public Use
  Company Number: US-ORIENT PHARMA CO., LTD.-2015ORT00001

PATIENT
  Age: 21 Year
  Sex: Female

DRUGS (13)
  1. ONDANSETRON [Suspect]
     Active Substance: ONDANSETRON
     Route: 065
  2. FLUOXETINE [Suspect]
     Active Substance: FLUOXETINE HYDROCHLORIDE
     Route: 065
  3. SUMATRIPTAN. [Suspect]
     Active Substance: SUMATRIPTAN
     Route: 065
  4. CARISOPRODOL. [Suspect]
     Active Substance: CARISOPRODOL
     Route: 065
  5. DEXTROMETHORPHAN [Suspect]
     Active Substance: DEXTROMETHORPHAN
     Route: 065
  6. MEPROBAMATE. [Suspect]
     Active Substance: MEPROBAMATE
     Route: 065
  7. NICOTINE. [Suspect]
     Active Substance: NICOTINE
     Route: 065
  8. DOXYLAMINE [Suspect]
     Active Substance: DOXYLAMINE
     Route: 065
  9. HYDROXYZINE [Suspect]
     Active Substance: HYDROXYZINE\HYDROXYZINE HYDROCHLORIDE
     Route: 065
  10. HYDROMORPHONE [Suspect]
     Active Substance: HYDROMORPHONE
     Route: 065
  11. TRIMPETHOPRIM [Suspect]
     Active Substance: TRIMETHOPRIM
     Route: 065
  12. GABAPENTIN. [Suspect]
     Active Substance: GABAPENTIN
     Route: 065
  13. ORPHENADRINE [Suspect]
     Active Substance: ORPHENADRINE
     Route: 065

REACTIONS (6)
  - Pulmonary oedema [None]
  - Drug interaction [Fatal]
  - Coronary artery occlusion [None]
  - Toxicity to various agents [Fatal]
  - Accidental death [Fatal]
  - Vomiting [None]
